FAERS Safety Report 5195394-6 (Version None)
Quarter: 2006Q4

REPORT INFORMATION
  Report Type: 
  Country: None (occurrence: None)
  Receive Date: 20061229
  Receipt Date: 20061221
  Transmission Date: 20070319
  Serious: Yes (Other)
  Sender: FDA-Public Use
  Company Number: US-PFIZER INC-2006155666

PATIENT
  Sex: Female
  Weight: 93 kg

DRUGS (3)
  1. ZOLOFT [Suspect]
     Indication: PANIC ATTACK
  2. ACIPHEX [Concomitant]
     Dates: start: 19990101
  3. TYLENOL (CAPLET) [Concomitant]

REACTIONS (4)
  - DIZZINESS [None]
  - DRUG EXPOSURE DURING PREGNANCY [None]
  - FALL [None]
  - NAUSEA [None]
